FAERS Safety Report 24956147 (Version 2)
Quarter: 2025Q1

REPORT INFORMATION
  Report Type: Spontaneous
  Country: JP (occurrence: JP)
  Receive Date: 20250211
  Receipt Date: 20250310
  Transmission Date: 20250408
  Serious: Yes (Hospitalization, Other)
  Sender: TEVA
  Company Number: JP-TEVA-VS-3294613

PATIENT
  Age: 33 Year
  Sex: Female

DRUGS (9)
  1. FLUTICASONE [Suspect]
     Active Substance: FLUTICASONE
     Indication: Asthma
     Route: 055
  2. FLUTICASONE [Suspect]
     Active Substance: FLUTICASONE
     Indication: Asthma
     Route: 055
  3. FLUTICASONE [Suspect]
     Active Substance: FLUTICASONE
     Indication: Asthma
     Route: 055
  4. FLUTICASONE [Suspect]
     Active Substance: FLUTICASONE
     Indication: Asthma
     Route: 055
  5. PREDNISOLONE [Suspect]
     Active Substance: PREDNISOLONE
     Indication: Eosinophilic pneumonia chronic
     Route: 048
  6. PREDNISOLONE [Suspect]
     Active Substance: PREDNISOLONE
     Indication: Eosinophilic pneumonia chronic
     Route: 048
  7. PREDNISOLONE [Suspect]
     Active Substance: PREDNISOLONE
     Indication: Eosinophilic pneumonia chronic
     Route: 048
  8. DUPILUMAB [Suspect]
     Active Substance: DUPILUMAB
     Indication: Eosinophilic pneumonia chronic
     Route: 058
  9. DUPILUMAB [Suspect]
     Active Substance: DUPILUMAB
     Indication: Eosinophilic pneumonia chronic
     Route: 058

REACTIONS (3)
  - Myalgia [Unknown]
  - Drug ineffective [Unknown]
  - Eosinophilia [Recovering/Resolving]
